FAERS Safety Report 8494417-6 (Version None)
Quarter: 2012Q3

REPORT INFORMATION
  Report Type: 
  Country: None (occurrence: None)
  Receive Date: 20120709
  Receipt Date: 20120702
  Transmission Date: 20120928
  Serious: Yes (Hospitalization, Disabling, Other)
  Sender: FDA-Public Use
  Company Number: US-MERCK-1203USA03321

PATIENT

DRUGS (7)
  1. ALENDRONATE SODIUM [Suspect]
     Indication: OSTEOPENIA
  2. FOSAMAX PLUS D [Suspect]
     Indication: OSTEOPOROSIS
     Dosage: 70 MG, QW
     Route: 048
     Dates: start: 20060501, end: 20100201
  3. FOSAMAX [Suspect]
     Indication: OSTEOPOROSIS
     Dosage: 70 MG, UNK
     Route: 048
     Dates: start: 19990401, end: 20100301
  4. FOSAMAX PLUS D [Suspect]
     Dosage: 35 MG, QW
     Route: 048
     Dates: start: 20070901, end: 20090522
  5. ALENDRONATE SODIUM [Suspect]
     Indication: OSTEOPOROSIS
     Dosage: 70 MG, QW
     Route: 048
     Dates: start: 20090523, end: 20100601
  6. FOSAMAX [Suspect]
     Indication: OSTEOPENIA
     Dosage: 10 MG, UNK
     Route: 048
     Dates: start: 19990405, end: 20100301
  7. FOSAMAX PLUS D [Suspect]
     Dosage: 70-5600
     Route: 048

REACTIONS (37)
  - FEMUR FRACTURE [None]
  - STRESS FRACTURE [None]
  - WHEEZING [None]
  - DERMATITIS [None]
  - NEUROPATHY PERIPHERAL [None]
  - STRESS URINARY INCONTINENCE [None]
  - INGROWING NAIL [None]
  - ACTIVITIES OF DAILY LIVING IMPAIRED [None]
  - PAIN [None]
  - ASTHENIA [None]
  - MUSCULAR WEAKNESS [None]
  - BRONCHITIS [None]
  - ASTHMA [None]
  - ARTHRALGIA [None]
  - UPPER RESPIRATORY TRACT INFECTION [None]
  - MYOPATHY [None]
  - TINNITUS [None]
  - ATROPHIC VULVOVAGINITIS [None]
  - URINARY TRACT INFECTION [None]
  - DERMAL CYST [None]
  - CONJUNCTIVITIS [None]
  - FEAR [None]
  - HAEMOGLOBIN DECREASED [None]
  - HYPERTENSION [None]
  - CYSTITIS [None]
  - GAIT DISTURBANCE [None]
  - MYOCARDIAL INFARCTION [None]
  - PNEUMONIA [None]
  - WEIGHT INCREASED [None]
  - DEPRESSION [None]
  - HAEMORRHOIDS [None]
  - OSTEOARTHRITIS [None]
  - OSTEOGENESIS IMPERFECTA [None]
  - COUGH [None]
  - LARYNGITIS [None]
  - VERTEBRAL FORAMINAL STENOSIS [None]
  - FATIGUE [None]
